FAERS Safety Report 7443055-2 (Version None)
Quarter: 2011Q2

REPORT INFORMATION
  Report Type: 
  Country: None (occurrence: None)
  Receive Date: 20110428
  Receipt Date: 20100526
  Transmission Date: 20111010
  Serious: No
  Sender: FDA-Public Use
  Company Number: US-MYLANLABS-2010S1009531

PATIENT
  Age: 76 Year
  Sex: Female
  Weight: 58.97 kg

DRUGS (7)
  1. DUONEB [Suspect]
     Indication: CHRONIC OBSTRUCTIVE PULMONARY DISEASE
     Route: 055
     Dates: start: 20060101
  2. DUONEB [Suspect]
     Indication: EMPHYSEMA
     Route: 055
     Dates: start: 20060101
  3. IMDUR [Concomitant]
  4. DUONEB [Suspect]
     Route: 055
     Dates: start: 20060101
  5. DUONEB [Suspect]
     Route: 055
     Dates: start: 20060101
  6. OXYGEN [Concomitant]
  7. MUCINEX [Concomitant]

REACTIONS (1)
  - CANDIDIASIS [None]
